FAERS Safety Report 19157484 (Version 1)
Quarter: 2021Q2

REPORT INFORMATION
  Report Type: Spontaneous
  Country: US (occurrence: US)
  Receive Date: 20210419
  Receipt Date: 20210419
  Transmission Date: 20210717
  Serious: No
  Sender: FDA-Public Use
  Company Number: None

PATIENT
  Age: 53 Year
  Sex: Male
  Weight: 58 kg

DRUGS (4)
  1. HYDROCOTISONE [Concomitant]
     Dates: start: 20210419, end: 20210419
  2. INFLIXIMAB [Suspect]
     Active Substance: INFLIXIMAB
     Indication: HEPATITIS B
     Dosage: ?          OTHER FREQUENCY:SAME DAY IV INFUSI;?
     Route: 041
     Dates: start: 20210419, end: 20210419
  3. DIPHENHYDRAMINE. [Concomitant]
     Active Substance: DIPHENHYDRAMINE
     Dates: start: 20210419, end: 20210419
  4. INFLIXIMAB [Suspect]
     Active Substance: INFLIXIMAB
     Indication: CROHN^S DISEASE
     Dosage: ?          OTHER FREQUENCY:SAME DAY IV INFUSI;?
     Route: 041
     Dates: start: 20210419, end: 20210419

REACTIONS (2)
  - Pruritus [None]
  - Urticaria [None]

NARRATIVE: CASE EVENT DATE: 20210419
